FAERS Safety Report 21384385 (Version 1)
Quarter: 2022Q3

REPORT INFORMATION
  Report Type: Spontaneous
  Country: RO (occurrence: RO)
  Receive Date: 20220928
  Receipt Date: 20220928
  Transmission Date: 20221027
  Serious: Yes (Other)
  Sender: FDA-Public Use
  Company Number: RO-SUN PHARMACEUTICAL INDUSTRIES LTD-2022RR-356288

PATIENT
  Age: 73 Year
  Sex: Male

DRUGS (2)
  1. GEMCITABINE [Suspect]
     Active Substance: GEMCITABINE
     Indication: Transitional cell carcinoma
     Dosage: 1000 MILLIGRAM/SQ. METER, 4 CYCLES
     Route: 065
     Dates: start: 202111, end: 202202
  2. CARBOPLATIN [Suspect]
     Active Substance: CARBOPLATIN
     Indication: Transitional cell carcinoma
     Dosage: AUC 5, UNK
     Route: 065
     Dates: start: 202111, end: 202202

REACTIONS (1)
  - Therapy partial responder [Unknown]

NARRATIVE: CASE EVENT DATE: 20220201
